FAERS Safety Report 10518549 (Version 3)
Quarter: 2014Q4

REPORT INFORMATION
  Report Type: Spontaneous
  Country: GB (occurrence: GB)
  Receive Date: 20141015
  Receipt Date: 20141015
  Transmission Date: 20150528
  Serious: Yes (Disabling)
  Sender: FDA-Public Use
  Company Number: GB-LEO PHARMA-220869

PATIENT
  Sex: Male
  Weight: 75 kg

DRUGS (1)
  1. PICATO [Suspect]
     Active Substance: INGENOL MEBUTATE
     Indication: ACTINIC KERATOSIS
     Route: 061
     Dates: start: 20130228, end: 20130301

REACTIONS (5)
  - Application site erythema [Recovering/Resolving]
  - Application site scab [Recovering/Resolving]
  - Application site discharge [Recovering/Resolving]
  - Incorrect drug administration duration [Unknown]
  - Application site pain [Recovering/Resolving]
